FAERS Safety Report 13918058 (Version 2)
Quarter: 2018Q2

REPORT INFORMATION
  Report Type: Spontaneous
  Country: PL (occurrence: PL)
  Receive Date: 20170829
  Receipt Date: 20180409
  Transmission Date: 20180711
  Serious: Yes (Other)
  Sender: FDA-Public Use
  Company Number: PHHY2017PL125703

PATIENT
  Age: 38 Year
  Sex: Male

DRUGS (2)
  1. PACLITAXEL SANDOZ [Suspect]
     Active Substance: PACLITAXEL
     Indication: OESOPHAGEAL SQUAMOUS CELL CARCINOMA
     Dosage: 50 MG/M2, QW, 4 CYCLES;REGIMEN:CARBOPLATIN AUC2 + PACLITAXEL 50 MG/M2, EVERY 7 DAYS
     Route: 065
     Dates: start: 201507, end: 201508
  2. CARBOPLATIN. [Suspect]
     Active Substance: CARBOPLATIN
     Indication: OESOPHAGEAL SQUAMOUS CELL CARCINOMA
     Dosage: 4 CYCLES;REGIMEN:CARBOPLATIN AUC2 + PACLITAXEL 50 MG/M2, EVERY 7 DAYS
     Route: 065
     Dates: start: 201507, end: 201508

REACTIONS (3)
  - Lymphadenopathy [Unknown]
  - Metastatic lymphoma [Unknown]
  - Skin lesion [Unknown]

NARRATIVE: CASE EVENT DATE: 201510
